FAERS Safety Report 20876023 (Version 2)
Quarter: 2022Q2

REPORT INFORMATION
  Report Type: Report from Study
  Country: US (occurrence: US)
  Receive Date: 20220526
  Receipt Date: 20220605
  Transmission Date: 20220720
  Serious: No
  Sender: FDA-Public Use
  Company Number: US-BEIGENE USA INC-BGN-2022-005682

PATIENT

DRUGS (1)
  1. BRUKINSA [Suspect]
     Active Substance: ZANUBRUTINIB
     Indication: Waldenstrom^s macroglobulinaemia
     Dosage: 80 MILLIGRAM, BID
     Route: 048
     Dates: start: 20220519

REACTIONS (3)
  - Diarrhoea [Unknown]
  - Haemoptysis [Unknown]
  - Underdose [Unknown]

NARRATIVE: CASE EVENT DATE: 20220524
